FAERS Safety Report 15477776 (Version 1)
Quarter: 2018Q4

REPORT INFORMATION
  Report Type: Spontaneous
  Country: US (occurrence: US)
  Receive Date: 20181002
  Receipt Date: 20181002
  Transmission Date: 20190205
  Serious: Yes (Death, Hospitalization)
  Sender: FDA-Public Use
  Company Number: None

PATIENT
  Age: 92 Year
  Sex: Male
  Weight: 88.2 kg

DRUGS (14)
  1. VITAMIN B12 [Concomitant]
     Active Substance: CYANOCOBALAMIN
  2. TYLENOL [Concomitant]
     Active Substance: ACETAMINOPHEN
  3. MULTIVITAMIN [Concomitant]
     Active Substance: VITAMINS
  4. SPIRONOLACTONE. [Suspect]
     Active Substance: SPIRONOLACTONE
     Indication: CARDIAC FAILURE
     Dosage: ?          QUANTITY:1 TABLET(S);?
     Route: 048
     Dates: start: 20180727, end: 20180829
  5. DUONEB [Concomitant]
     Active Substance: ALBUTEROL SULFATE\IPRATROPIUM BROMIDE
  6. VERAPAMIL [Concomitant]
     Active Substance: VERAPAMIL HYDROCHLORIDE
  7. INSULIN R AND N MIXED [Concomitant]
  8. SIMBICORT [Concomitant]
     Active Substance: BUDESONIDE\FORMOTEROL FUMARATE
  9. WARFARIN [Concomitant]
     Active Substance: WARFARIN
  10. NYSTATIN POWDER [Concomitant]
     Active Substance: NYSTATIN
  11. LEVOFLOXACIN. [Concomitant]
     Active Substance: LEVOFLOXACIN
  12. HYDROCODONE [Concomitant]
     Active Substance: HYDROCODONE
  13. TRIAMCINOLONE CREAM [Concomitant]
     Active Substance: TRIAMCINOLONE
  14. DELAUDID [Concomitant]

REACTIONS (1)
  - Death [None]

NARRATIVE: CASE EVENT DATE: 20180829
